FAERS Safety Report 6610322-1 (Version None)
Quarter: 2010Q1

REPORT INFORMATION
  Report Type: 
  Country: None (occurrence: None)
  Receive Date: 20100302
  Receipt Date: 20100219
  Transmission Date: 20100710
  Serious: Yes (Death, Hospitalization, Other)
  Sender: FDA-Public Use
  Company Number: GXKR2010HR02082

PATIENT
  Age: 34 Year
  Sex: Male

DRUGS (3)
  1. CLOZAPINE [Suspect]
     Indication: SCHIZOPHRENIA
     Dosage: AVERAGING 150-300 MG/DAY
     Route: 065
  2. FLUPHENAZINE (NGX) [Interacting]
     Indication: SCHIZOPHRENIA
     Dosage: DEPOT FORM
     Route: 065
  3. FLUPHENAZINE (NGX) [Interacting]
     Dosage: 3 MG, UNK
     Route: 048

REACTIONS (12)
  - BLOOD CREATINE PHOSPHOKINASE INCREASED [None]
  - DRUG INEFFECTIVE [None]
  - HYPERHIDROSIS [None]
  - INTENTIONAL OVERDOSE [None]
  - LUNG INFILTRATION [None]
  - MUSCLE RIGIDITY [None]
  - NEUROLEPTIC MALIGNANT SYNDROME [None]
  - PNEUMONIA [None]
  - PULMONARY HAEMORRHAGE [None]
  - PYREXIA [None]
  - SUICIDE ATTEMPT [None]
  - TACHYCARDIA [None]
